FAERS Safety Report 8407780-9 (Version None)
Quarter: 2012Q2

REPORT INFORMATION
  Report Type: 
  Country: None (occurrence: None)
  Receive Date: 20120604
  Receipt Date: 20120530
  Transmission Date: 20120825
  Serious: Yes (Hospitalization, Congenital Anomaly)
  Sender: FDA-Public Use
  Company Number: US-GLAXOSMITHKLINE-A0979875A

PATIENT
  Sex: Male

DRUGS (4)
  1. PAXIL [Suspect]
     Indication: HEADACHE
     Dosage: 10MG AS REQUIRED
     Route: 064
     Dates: end: 20000717
  2. SUDAFED 12 HOUR [Concomitant]
  3. PHENERGAN [Concomitant]
  4. MULTI-VITAMINS [Concomitant]

REACTIONS (14)
  - HETEROTAXIA [None]
  - LAEVOCARDIA [None]
  - SUPERIOR VENA CAVA DILATATION [None]
  - HYDRONEPHROSIS [None]
  - INFERIOR VENA CAVA DILATATION [None]
  - DUODENAL STENOSIS [None]
  - PATENT DUCTUS ARTERIOSUS [None]
  - FOETAL EXPOSURE DURING PREGNANCY [None]
  - UMBILICAL HERNIA [None]
  - PYELOCALIECTASIS [None]
  - URETERIC DILATATION [None]
  - ATRIAL SEPTAL DEFECT [None]
  - DUODENAL ATRESIA [None]
  - HEART DISEASE CONGENITAL [None]
